FAERS Safety Report 15843402 (Version 3)
Quarter: 2019Q1

REPORT INFORMATION
  Report Type: Spontaneous
  Country: GE (occurrence: GE)
  Receive Date: 20190118
  Receipt Date: 20190222
  Transmission Date: 20190417
  Serious: Yes (Death, Life-Threatening, Other)
  Sender: FDA-Public Use
  Company Number: GE-ASTRAZENECA-2019SE08084

PATIENT
  Age: 62 Year
  Sex: Female
  Weight: 86 kg

DRUGS (1)
  1. FASLODEX [Suspect]
     Active Substance: FULVESTRANT
     Indication: INTRADUCTAL PROLIFERATIVE BREAST LESION
     Route: 030
     Dates: start: 20180419, end: 20190115

REACTIONS (6)
  - Dyspnoea [Fatal]
  - Headache [Fatal]
  - Swelling [Fatal]
  - Allergic oedema [Fatal]
  - Face oedema [Fatal]
  - Malignant neoplasm progression [Unknown]
